FAERS Safety Report 15263456 (Version 1)
Quarter: 2018Q3

REPORT INFORMATION
  Report Type: Spontaneous
  Country: US (occurrence: US)
  Receive Date: 20180720
  Receipt Date: 20180720
  Transmission Date: 20181010
  Serious: Yes (Disabling, Other)
  Sender: FDA-Public Use
  Company Number: None

PATIENT
  Age: 62 Year
  Sex: Female
  Weight: 104.4 kg

DRUGS (2)
  1. ONGLYZA [Suspect]
     Active Substance: SAXAGLIPTIN HYDROCHLORIDE
     Indication: TYPE 2 DIABETES MELLITUS
     Dosage: ?          QUANTITY:30 TABLET(S);?
     Route: 048
     Dates: start: 20150514, end: 20180717
  2. JARDIANCE [Suspect]
     Active Substance: EMPAGLIFLOZIN
     Indication: TYPE 2 DIABETES MELLITUS
     Dosage: ?          QUANTITY:90 TABLET(S);?
     Route: 048
     Dates: start: 20170807, end: 20180717

REACTIONS (15)
  - Vulvovaginal pruritus [None]
  - Vulvovaginal swelling [None]
  - Vaginal haemorrhage [None]
  - Tinea cruris [None]
  - Abdominal distension [None]
  - Alopecia [None]
  - Emotional distress [None]
  - Abdominal discomfort [None]
  - Drug ineffective [None]
  - Urinary tract infection [None]
  - Vulvovaginal burning sensation [None]
  - Vulvovaginal mycotic infection [None]
  - Vaginal laceration [None]
  - Infection [None]
  - Pruritus [None]

NARRATIVE: CASE EVENT DATE: 20180102
